FAERS Safety Report 18972423 (Version 1)
Quarter: 2021Q1

REPORT INFORMATION
  Report Type: Spontaneous
  Country: US (occurrence: US)
  Receive Date: 20210304
  Receipt Date: 20210304
  Transmission Date: 20210420
  Serious: No
  Sender: FDA-Public Use
  Company Number: None

PATIENT
  Age: 45 Year
  Sex: Female

DRUGS (2)
  1. ETODOLAC. [Suspect]
     Active Substance: ETODOLAC
     Indication: PAIN
     Route: 048
  2. ETODOLAC. [Suspect]
     Active Substance: ETODOLAC
     Indication: PAIN
     Dosage: 30 DAY DURATION
     Route: 048

REACTIONS (2)
  - Intercepted product selection error [None]
  - Product appearance confusion [None]

NARRATIVE: CASE EVENT DATE: 20210303
